FAERS Safety Report 5572408-2 (Version None)
Quarter: 2007Q4

REPORT INFORMATION
  Report Type: 
  Country: None (occurrence: None)
  Receive Date: 20071219
  Receipt Date: 20071206
  Transmission Date: 20080405
  Serious: Yes (Hospitalization, Other)
  Sender: FDA-Public Use
  Company Number: 2007SP024154

PATIENT
  Age: 13 Year
  Sex: Female

DRUGS (2)
  1. CLARITYNE (LORATADINE 5MG/PSEUDOEPHEDRINE SULFATE 120MG) (LORATADINE W [Suspect]
     Indication: RHINITIS ALLERGIC
     Dosage: 1 DF; BID; PO
     Route: 048
     Dates: start: 20071127, end: 20071128
  2. BENZODIAZEPINE (BENZODIAZEPINE DERIVATIVES) [Suspect]
     Indication: DRUG USE FOR UNKNOWN INDICATION

REACTIONS (3)
  - CONVULSION [None]
  - DISORIENTATION [None]
  - VOMITING [None]
